FAERS Safety Report 23079442 (Version 2)
Quarter: 2023Q4

REPORT INFORMATION
  Report Type: Spontaneous
  Country: CA (occurrence: CA)
  Receive Date: 20231018
  Receipt Date: 20231129
  Transmission Date: 20240110
  Serious: Yes (Hospitalization, Other)
  Sender: FDA-Public Use
  Company Number: CA-BAYER-2023A144425

PATIENT
  Age: 31 Year
  Sex: Female

DRUGS (1)
  1. MIRENA [Suspect]
     Active Substance: LEVONORGESTREL
     Dosage: 20?G/DAY
     Route: 015
     Dates: start: 2018

REACTIONS (7)
  - Embedded device [None]
  - Device breakage [None]
  - Device difficult to use [None]
  - Genital haemorrhage [None]
  - Abdominal pain lower [None]
  - Complication of device removal [None]
  - Wrong technique in device usage process [None]
